FAERS Safety Report 20739694 (Version 1)
Quarter: 2022Q2

REPORT INFORMATION
  Report Type: Report from Study
  Country: AT (occurrence: AT)
  Receive Date: 20220422
  Receipt Date: 20220422
  Transmission Date: 20220721
  Serious: Yes (Other)
  Sender: FDA-Public Use
  Company Number: AT-MYLANLABS-2022M1029211

PATIENT
  Age: 43 Year
  Sex: Male

DRUGS (11)
  1. SUNITINIB [Suspect]
     Active Substance: SUNITINIB
     Indication: Metastatic renal cell carcinoma
     Dosage: UNK; AS FIRST LINE TREATMENT
     Route: 065
     Dates: start: 201605
  2. SUNITINIB [Suspect]
     Active Substance: SUNITINIB
     Dosage: UNK; AS THE FIFTH-LINE THERAPY FOR 6 MONTHS.
     Route: 065
     Dates: start: 201812
  3. EVEROLIMUS [Suspect]
     Active Substance: EVEROLIMUS
     Indication: Metastatic renal cell carcinoma
     Dosage: UNK; AS FOURTH-LINE THERAPY WITH LENVATINIB
     Route: 065
     Dates: start: 201804
  4. CABOZANTINIB [Suspect]
     Active Substance: CABOZANTINIB
     Indication: Metastatic renal cell carcinoma
     Dosage: UNK; AS SECOND LINE TREATMENT
     Route: 065
     Dates: start: 201707
  5. CABOZANTINIB [Suspect]
     Active Substance: CABOZANTINIB
     Dosage: UNK; TWO COURSES OF THIRD-LINE THERAPY WITH NIVOLUMAB
     Route: 065
     Dates: start: 201710
  6. NIVOLUMAB [Suspect]
     Active Substance: NIVOLUMAB
     Indication: Metastatic renal cell carcinoma
     Dosage: UNK; TWO COURSES AS THE THIRD LINE TREATMENT
     Route: 065
     Dates: start: 201710
  7. NIVOLUMAB [Suspect]
     Active Substance: NIVOLUMAB
     Dosage: UNK; AGAIN RECEIVED AS THIRD-LINE MONOTHERAPY
     Route: 065
     Dates: start: 201712
  8. NIVOLUMAB [Suspect]
     Active Substance: NIVOLUMAB
     Dosage: UNK; AS SEVENTH-LINE TRIPLET THERAPY WITH IPILIMUMAB AND AXITINIB
     Route: 065
     Dates: start: 201909
  9. LENVATINIB [Suspect]
     Active Substance: LENVATINIB
     Indication: Metastatic renal cell carcinoma
     Dosage: UNK; AS THE FOURTH-LINE THERAPY WITH EVEROLIMUS.
     Route: 065
     Dates: start: 201804
  10. AXITINIB [Suspect]
     Active Substance: AXITINIB
     Indication: Metastatic renal cell carcinoma
     Dosage: UNK; AS SIXTH-LINE THERAPY
     Route: 065
     Dates: start: 201906
  11. AXITINIB [Suspect]
     Active Substance: AXITINIB
     Dosage: UNK; AS SEVENTH-LINE TRIPLET THERAPY WITH NIVOLUMAB AND IPILIMUMAB.
     Route: 065
     Dates: start: 201909

REACTIONS (1)
  - Drug ineffective [Unknown]
